FAERS Safety Report 14547316 (Version 1)
Quarter: 2018Q1

REPORT INFORMATION
  Report Type: Report from Study
  Country: US (occurrence: US)
  Receive Date: 20180219
  Receipt Date: 20180219
  Transmission Date: 20180509
  Serious: Yes (Hospitalization, Other)
  Sender: FDA-Public Use
  Company Number: US-BAYER-2018-026519

PATIENT
  Age: 62 Year
  Sex: Female

DRUGS (2)
  1. ADEMPAS [Suspect]
     Active Substance: RIOCIGUAT
     Indication: PULMONARY ARTERIAL HYPERTENSION
     Dosage: 1.5 MG, UNK
     Route: 048
     Dates: start: 20180212
  2. ADEMPAS [Suspect]
     Active Substance: RIOCIGUAT
     Indication: PULMONARY ARTERIAL HYPERTENSION
     Dosage: UNK
     Dates: start: 20160608

REACTIONS (6)
  - Nausea [None]
  - Fluid overload [None]
  - Hospitalisation [None]
  - Endometrial cancer [None]
  - Treatment noncompliance [None]
  - Cervix carcinoma [None]

NARRATIVE: CASE EVENT DATE: 2018
